FAERS Safety Report 16362570 (Version 1)
Quarter: 2019Q2

REPORT INFORMATION
  Report Type: Spontaneous
  Country: US (occurrence: US)
  Receive Date: 20190418
  Receipt Date: 20190418
  Transmission Date: 20190711
  Serious: Yes (Disabling, Other)
  Sender: FDA-Public Use
  Company Number: None

PATIENT
  Age: 77 Year
  Sex: Female
  Weight: 63.5 kg

DRUGS (12)
  1. SYNTHROID [Concomitant]
     Active Substance: LEVOTHYROXINE SODIUM
  2. INOSITOL [Concomitant]
     Active Substance: INOSITOL
  3. VITAMIN D3 [Concomitant]
     Active Substance: CHOLECALCIFEROL
  4. WOBENZYME [Concomitant]
  5. GTF CHROMIUM [Concomitant]
  6. HYDROCHLOROTHIAZIDE. [Concomitant]
     Active Substance: HYDROCHLOROTHIAZIDE
  7. VITAMIN C [Concomitant]
     Active Substance: ASCORBIC ACID
  8. CAL-MAG CITRATE [Concomitant]
  9. MULTI VITAMIN [Concomitant]
     Active Substance: VITAMINS
  10. ALPHA LIPOIC ACID [Concomitant]
     Active Substance: .ALPHA.-LIPOIC ACID
  11. LOSARTAN. [Suspect]
     Active Substance: LOSARTAN
     Indication: BLOOD PRESSURE FLUCTUATION
     Route: 048
     Dates: start: 20150126, end: 20170328
  12. SELENIUM [Concomitant]
     Active Substance: SELENIUM

REACTIONS (11)
  - Peripheral swelling [None]
  - Influenza [None]
  - Irritability [None]
  - Macular degeneration [None]
  - Alopecia [None]
  - Deafness [None]
  - Glaucoma [None]
  - Skin discolouration [None]
  - Weight increased [None]
  - Drug dependence [None]
  - Limb discomfort [None]
